FAERS Safety Report 7549549-3 (Version None)
Quarter: 2011Q2

REPORT INFORMATION
  Report Type: 
  Country: None (occurrence: None)
  Receive Date: 20110615
  Receipt Date: 20110519
  Transmission Date: 20111010
  Serious: Yes (Other)
  Sender: FDA-Public Use
  Company Number: A0855324A

PATIENT
  Age: 55 Year
  Sex: Female
  Weight: 70 kg

DRUGS (4)
  1. PACLITAXEL [Suspect]
     Indication: BREAST CANCER
     Dosage: 80MGM2 WEEKLY
     Route: 042
     Dates: start: 20100409
  2. LAPATINIB [Suspect]
     Indication: BREAST CANCER
     Dosage: 1000MG PER DAY
     Route: 048
     Dates: start: 20100409
  3. TRASTUZUMAB [Suspect]
     Indication: BREAST CANCER
     Route: 042
     Dates: start: 20100409
  4. LISINOPRIL [Concomitant]

REACTIONS (3)
  - SYNCOPE [None]
  - HYPOKALAEMIA [None]
  - DEHYDRATION [None]
